FAERS Safety Report 23157601 (Version 1)
Quarter: 2023Q4

REPORT INFORMATION
  Report Type: Spontaneous
  Country: US (occurrence: US)
  Receive Date: 20231108
  Receipt Date: 20231108
  Transmission Date: 20240110
  Serious: Yes (Other)
  Sender: FDA-Public Use
  Company Number: US-AVET LIFESCIENCES LTD-2023-AVET-000322

PATIENT
  Age: 12 Year
  Sex: Male

DRUGS (6)
  1. METFORMIN [Suspect]
     Active Substance: METFORMIN HYDROCHLORIDE
     Indication: Type 2 diabetes mellitus
     Dosage: UNK
     Route: 065
  2. METFORMIN [Suspect]
     Active Substance: METFORMIN HYDROCHLORIDE
     Dosage: 1000 MILLIGRAM, BID
     Route: 065
  3. AMLODIPINE [Concomitant]
     Active Substance: AMLODIPINE BESYLATE
     Indication: Hypertension
     Dosage: 5 MILLIGRAM DAILY
     Route: 065
  4. ATENOLOL [Concomitant]
     Active Substance: ATENOLOL
     Indication: Hypertension
     Dosage: 50 MILLIGRAM DAILY
     Route: 065
  5. LONAPEGSOMATROPIN-TCGD [Concomitant]
     Active Substance: LONAPEGSOMATROPIN-TCGD
     Indication: Blood growth hormone decreased
     Dosage: UNK
     Route: 065
  6. LONAPEGSOMATROPIN-TCGD [Concomitant]
     Active Substance: LONAPEGSOMATROPIN-TCGD
     Dosage: 22 MILLIGRAM, 1 DOSE PER 1W
     Route: 065

REACTIONS (1)
  - Gastrointestinal disorder [Unknown]
